FAERS Safety Report 4309265-8 (Version None)
Quarter: 2004Q1

REPORT INFORMATION
  Report Type: 
  Country: None (occurrence: None)
  Receive Date: 20040301
  Receipt Date: 20040224
  Transmission Date: 20041129
  Serious: Yes (Hospitalization)
  Sender: FDA-Public Use
  Company Number: US-JNJFOC-20040204054

PATIENT
  Age: 76 Year
  Sex: Male

DRUGS (7)
  1. DURAGESIC [Suspect]
     Dosage: 75 UG/HR, 1 IN 72 HOUR, TRANSDERMAL; 50 UG/HR, 1 IN 72 HOUR, TRANSDERMAL
     Route: 062
     Dates: end: 20040213
  2. DURAGESIC [Suspect]
     Dosage: 75 UG/HR, 1 IN 72 HOUR, TRANSDERMAL; 50 UG/HR, 1 IN 72 HOUR, TRANSDERMAL
     Route: 062
     Dates: start: 20040214
  3. ACEBUTOLOL [Concomitant]
  4. RANITIDINE [Concomitant]
  5. ASPIRIN (ACETYLSALICYLID ACID) [Concomitant]
  6. AMITRIPTYLINE HCL [Concomitant]
  7. NITROGLYCERIN [Concomitant]

REACTIONS (5)
  - DEHYDRATION [None]
  - DYSARTHRIA [None]
  - DYSPNOEA [None]
  - MENTAL STATUS CHANGES [None]
  - SEDATION [None]
